FAERS Safety Report 7642161-7 (Version None)
Quarter: 2011Q3

REPORT INFORMATION
  Report Type: 
  Country: None (occurrence: None)
  Receive Date: 20110728
  Receipt Date: 20110722
  Transmission Date: 20111222
  Serious: Yes (Other)
  Sender: FDA-Public Use
  Company Number: US-PFIZER INC-2011168500

PATIENT

DRUGS (1)
  1. LINEZOLID [Suspect]

REACTIONS (1)
  - HYPOGLYCAEMIA [None]
